FAERS Safety Report 4987811-9 (Version None)
Quarter: 2006Q2

REPORT INFORMATION
  Report Type: 
  Country: None (occurrence: None)
  Receive Date: 20060427
  Receipt Date: 20060427
  Transmission Date: 20061013
  Serious: No
  Sender: FDA-Public Use
  Company Number: None

PATIENT
  Age: 33 Year
  Sex: Female

DRUGS (6)
  1. PREGABALIN    150MG    PFIZER [Suspect]
     Dosage: 150MG   BID   PO
     Route: 048
     Dates: start: 20060118, end: 20060118
  2. MEPERIDINE HCL [Concomitant]
  3. DEXAMETHASONE [Concomitant]
  4. NYSTATIN [Concomitant]
  5. DIAZEPAM [Concomitant]
  6. PROMETHAZINE [Concomitant]

REACTIONS (3)
  - PAIN [None]
  - SWELLING FACE [None]
  - SWOLLEN TONGUE [None]
